FAERS Safety Report 6112048-X (Version None)
Quarter: 2009Q1

REPORT INFORMATION
  Report Type: 
  Country: None (occurrence: None)
  Receive Date: 20090311
  Receipt Date: 20090227
  Transmission Date: 20090719
  Serious: Yes (Other)
  Sender: FDA-Public Use
  Company Number: CN-PFIZER INC-2009177405

PATIENT

DRUGS (2)
  1. XALATAN [Suspect]
     Indication: OPEN ANGLE GLAUCOMA
     Route: 047
  2. BRINZOLAMIDE [Concomitant]
     Indication: OPEN ANGLE GLAUCOMA
     Route: 047

REACTIONS (1)
  - INTRAOCULAR PRESSURE INCREASED [None]
